FAERS Safety Report 6434736-8 (Version None)
Quarter: 2009Q4

REPORT INFORMATION
  Report Type: 
  Country: None (occurrence: None)
  Receive Date: 20091110
  Receipt Date: 20091102
  Transmission Date: 20100525
  Serious: Yes (Hospitalization)
  Sender: FDA-Public Use
  Company Number: DE-MERCK-0901USA02991

PATIENT
  Age: 84 Year
  Sex: Female
  Weight: 71 kg

DRUGS (9)
  1. PRINZIDE [Suspect]
     Indication: HYPERTENSION
     Route: 048
     Dates: end: 20080617
  2. AMLODIPINE [Suspect]
     Indication: HYPERTENSION
     Route: 048
  3. METOPROLOL TARTRATE [Suspect]
     Indication: HYPERTENSION
     Route: 048
  4. MOXONIDINE [Suspect]
     Indication: HYPERTENSION
     Route: 048
  5. NITRO-SPRAY [Suspect]
     Indication: HYPERTENSION
     Dates: end: 20080612
  6. ASPIRIN [Concomitant]
     Indication: INFARCTION
     Route: 048
     Dates: start: 20010101
  7. LEVETIRACETAM [Concomitant]
     Indication: INFARCTION
     Route: 048
  8. PANTOPRAZOLE SODIUM [Concomitant]
     Indication: PROPHYLAXIS
     Route: 048
  9. SIMVASTATIN [Concomitant]
     Indication: THROMBOSIS PROPHYLAXIS
     Route: 048

REACTIONS (2)
  - DRUG INTERACTION [None]
  - SYNCOPE [None]
